FAERS Safety Report 8925153 (Version 1)
Quarter: 2012Q4

REPORT INFORMATION
  Report Type: 
  Country: FR (occurrence: FR)
  Receive Date: 20121126
  Receipt Date: 20121126
  Transmission Date: 20130627
  Serious: Yes (Death, Life-Threatening, Hospitalization)
  Sender: FDA-Public Use
  Company Number: FR-ASTRAZENECA-2012SE88050

PATIENT
  Sex: Male

DRUGS (8)
  1. INEXIUM [Suspect]
     Route: 042
  2. VFEND [Interacting]
     Indication: BRONCHOPULMONARY ASPERGILLOSIS
     Route: 042
     Dates: end: 20120921
  3. CLAVENTIN [Suspect]
     Indication: PNEUMONIA
     Route: 042
     Dates: end: 20120917
  4. COOLMETEC [Concomitant]
     Route: 048
  5. IXPRIM [Concomitant]
     Route: 048
  6. K1 VITAMIN [Concomitant]
     Route: 048
  7. NEURONTIN [Concomitant]
     Route: 048
  8. FUNGIZONE [Concomitant]

REACTIONS (10)
  - Drug interaction [Fatal]
  - Jaundice cholestatic [Fatal]
  - Hepatic failure [Fatal]
  - Chromaturia [Fatal]
  - Prothrombin time ratio decreased [Fatal]
  - Hepatic encephalopathy [Fatal]
  - Blood alkaline phosphatase increased [Fatal]
  - Gamma-glutamyltransferase increased [Fatal]
  - Blood albumin decreased [Fatal]
  - Blood bilirubin increased [Fatal]
